FAERS Safety Report 4788120-3 (Version None)
Quarter: 2005Q4

REPORT INFORMATION
  Report Type: 
  Country: None (occurrence: None)
  Receive Date: 20051003
  Receipt Date: 20050920
  Transmission Date: 20060501
  Serious: Yes (Hospitalization)
  Sender: FDA-Public Use
  Company Number: 200510622BFR

PATIENT
  Age: 85 Year
  Sex: Female

DRUGS (4)
  1. CIPROFLOXACIN HCL [Suspect]
     Indication: URINARY TRACT INFECTION
     Dosage: ORAL
     Route: 048
     Dates: start: 20050820, end: 20050826
  2. OMEPRAZOLE [Concomitant]
  3. PRAXILENE [Concomitant]
  4. PROPOFOL [Concomitant]

REACTIONS (2)
  - ABDOMINAL PAIN [None]
  - VASCULAR PURPURA [None]
